FAERS Safety Report 24667728 (Version 1)
Quarter: 2024Q4

REPORT INFORMATION
  Report Type: Spontaneous
  Country: ZA (occurrence: ZA)
  Receive Date: 20241127
  Receipt Date: 20241127
  Transmission Date: 20250114
  Serious: Yes (Other)
  Sender: AUROBINDO
  Company Number: ZA-MLMSERVICE-20241031-PI246120-00275-1

PATIENT
  Age: 38 Year
  Sex: Male

DRUGS (6)
  1. QUETIAPINE [Interacting]
     Active Substance: QUETIAPINE
     Indication: Bipolar I disorder
     Dosage: 200 MG IN THE MORNING AND 400 MG IN THE EVENING
     Route: 065
  2. QUETIAPINE [Interacting]
     Active Substance: QUETIAPINE
     Dosage: 200 MG IN THE MORNING AND 400 MG IN THE EVENING
     Route: 065
  3. QUETIAPINE [Interacting]
     Active Substance: QUETIAPINE
     Dosage: DOSED AT 200 MG TWICE DAILY
     Route: 065
  4. QUETIAPINE [Interacting]
     Active Substance: QUETIAPINE
     Dosage: 50 MILLIGRAM
     Route: 065
  5. VALPROATE SODIUM [Interacting]
     Active Substance: VALPROATE SODIUM
     Indication: Bipolar I disorder
     Dosage: 700 MILLIGRAM, TWO TIMES A DAY
     Route: 065
  6. ZUCLOPENTHIXOL DECANOATE [Concomitant]
     Active Substance: ZUCLOPENTHIXOL DECANOATE
     Indication: Bipolar I disorder
     Dosage: 200 MILLIGRAM, MONTHLY
     Route: 065

REACTIONS (2)
  - Oedema peripheral [Recovered/Resolved]
  - Drug interaction [Unknown]
